FAERS Safety Report 7079362-5 (Version None)
Quarter: 2010Q4

REPORT INFORMATION
  Report Type: 
  Country: None (occurrence: None)
  Receive Date: 20101102
  Receipt Date: 20101022
  Transmission Date: 20110411
  Serious: Yes (Other)
  Sender: FDA-Public Use
  Company Number: CH-JNJFOC-20101006843

PATIENT

DRUGS (2)
  1. REMICADE [Suspect]
     Indication: AUTOIMMUNE DISORDER
     Route: 042
  2. LEFLUNOMIDE [Concomitant]

REACTIONS (2)
  - ALOPECIA [None]
  - RASH [None]
